FAERS Safety Report 10556464 (Version 2)
Quarter: 2014Q4

REPORT INFORMATION
  Report Type: Spontaneous
  Country: BR (occurrence: BR)
  Receive Date: 20141031
  Receipt Date: 20141031
  Transmission Date: 20150529
  Serious: Yes (Hospitalization, Other)
  Sender: FDA-Public Use
  Company Number: BR-AUROBINDO-AUR-APL-2014-08958

PATIENT
  Age: 80 Year
  Sex: Male

DRUGS (10)
  1. ATENOLOL 50 MG [Suspect]
     Active Substance: ATENOLOL
     Indication: HYPERTENSION
     Dosage: 50 MG, TWO TIMES A DAY
  2. AMLODIPINE BESYLATE. [Concomitant]
     Active Substance: AMLODIPINE BESYLATE
     Indication: HYPERTENSION
     Route: 065
  3. RANITIDINE [Concomitant]
     Active Substance: RANITIDINE\RANITIDINE HYDROCHLORIDE
     Indication: SMALL INTESTINAL HAEMORRHAGE
     Dosage: UNK
     Route: 065
     Dates: start: 2009
  4. ATENSINA [Concomitant]
     Active Substance: CLONIDINE
     Indication: HYPERTENSION
     Route: 065
  5. ENALAPRIL MALEATE. [Concomitant]
     Active Substance: ENALAPRIL MALEATE
     Indication: HYPERTENSION
     Route: 065
  6. SEROQUEL XR [Suspect]
     Active Substance: QUETIAPINE FUMARATE
     Indication: HALLUCINATION
     Dosage: 50 MG, DAILY
     Route: 048
     Dates: start: 2013
  7. CLOPIDOGREL [Concomitant]
     Active Substance: CLOPIDOGREL BISULFATE
     Indication: ANTICOAGULANT THERAPY
     Dosage: UNK
     Route: 065
     Dates: start: 2007
  8. METFORMIN [Suspect]
     Active Substance: METFORMIN HYDROCHLORIDE
     Indication: GLUCOSE TOLERANCE IMPAIRED
     Route: 048
  9. LIPITOR [Concomitant]
     Active Substance: ATORVASTATIN CALCIUM
     Indication: ISCHAEMIC STROKE
     Dosage: UNK
     Route: 065
     Dates: start: 2007
  10. EQUILID [Concomitant]
     Active Substance: SULPIRIDE
     Indication: HEART RATE IRREGULAR
     Dosage: UNK
     Route: 065
     Dates: start: 201405

REACTIONS (9)
  - Hallucination [Not Recovered/Not Resolved]
  - Dysphagia [Recovering/Resolving]
  - Weight decreased [Not Recovered/Not Resolved]
  - Ischaemic stroke [Recovered/Resolved with Sequelae]
  - Small intestinal haemorrhage [Recovered/Resolved]
  - Balance disorder [Recovering/Resolving]
  - Heart rate irregular [Unknown]
  - Off label use [Not Recovered/Not Resolved]
  - Speech disorder [Recovering/Resolving]

NARRATIVE: CASE EVENT DATE: 2007
